FAERS Safety Report 15893171 (Version 1)
Quarter: 2019Q1

REPORT INFORMATION
  Report Type: Spontaneous
  Country: CA (occurrence: CA)
  Receive Date: 20190130
  Receipt Date: 20190130
  Transmission Date: 20190417
  Serious: No
  Sender: FDA-Public Use
  Company Number: CA-EXELIXIS-CABO-18016450

PATIENT
  Sex: Female

DRUGS (2)
  1. CABOMETYX [Suspect]
     Active Substance: CABOZANTINIB S-MALATE
     Indication: PRODUCT USED FOR UNKNOWN INDICATION
     Dosage: 60 MG, UNK
     Dates: end: 2018
  2. CABOMETYX [Suspect]
     Active Substance: CABOZANTINIB S-MALATE
     Dosage: 40 MG, UNK
     Route: 048
     Dates: start: 2018

REACTIONS (4)
  - Gingival blister [Recovering/Resolving]
  - Oral discomfort [Recovering/Resolving]
  - Blister [Recovering/Resolving]
  - Tongue blistering [Recovering/Resolving]

NARRATIVE: CASE EVENT DATE: 20180716
